FAERS Safety Report 13774552 (Version 1)
Quarter: 2017Q3

REPORT INFORMATION
  Report Type: Spontaneous
  Country: US (occurrence: US)
  Receive Date: 20170720
  Receipt Date: 20170720
  Transmission Date: 20171127
  Serious: Yes (Other)
  Sender: FDA-Public Use
  Company Number: US-BAYER-2017-133256

PATIENT
  Age: 9 Year
  Sex: Male
  Weight: 24.94 kg

DRUGS (3)
  1. COPPERTONE SPORT SPF 30 [Suspect]
     Active Substance: AVOBENZONE\HOMOSALATE\OCTISALATE\OCTOCRYLENE
     Indication: THERAPEUTIC SKIN CARE TOPICAL
     Dosage: UNK
     Route: 061
     Dates: start: 2009, end: 20170703
  2. HYDROXYZINE [Concomitant]
     Active Substance: HYDROXYZINE HYDROCHLORIDE
  3. COPPERTONE SPORT SPF 30 [Suspect]
     Active Substance: AVOBENZONE\HOMOSALATE\OCTISALATE\OCTOCRYLENE
     Indication: THERAPEUTIC SKIN CARE TOPICAL
     Dosage: 1 DF, PRN (20 MINS BEFORE SUN EXP)
     Route: 061
     Dates: end: 20170703

REACTIONS (3)
  - Burns second degree [Not Recovered/Not Resolved]
  - Blister [Not Recovered/Not Resolved]
  - Pain of skin [Not Recovered/Not Resolved]

NARRATIVE: CASE EVENT DATE: 20170703
